FAERS Safety Report 14423662 (Version 1)
Quarter: 2018Q1

REPORT INFORMATION
  Report Type: Spontaneous
  Country: FR (occurrence: FR)
  Receive Date: 20180123
  Receipt Date: 20180123
  Transmission Date: 20180509
  Serious: Yes (Hospitalization)
  Sender: FDA-Public Use
  Company Number: FR-TEVA-2018-FR-848063

PATIENT
  Age: 63 Year
  Sex: Male

DRUGS (6)
  1. DOXORUBICINE TEVA [Suspect]
     Active Substance: DOXORUBICIN
     Indication: HODGKIN^S DISEASE
     Route: 065
     Dates: start: 20170428
  2. VELBE 10 MG, POUDRE POUR SOLUTION INJECTABLE I.V. [Suspect]
     Active Substance: VINBLASTINE SULFATE
     Indication: HODGKIN^S DISEASE
     Route: 065
     Dates: start: 20170428
  3. KARDEGIC [Concomitant]
     Active Substance: ASPIRIN DL-LYSINE
     Route: 048
  4. BACTRIM [Suspect]
     Active Substance: SULFAMETHOXAZOLE\TRIMETHOPRIM
     Indication: ANTIBIOTIC THERAPY
     Route: 048
     Dates: start: 20171006
  5. TEGRETOL [Concomitant]
     Active Substance: CARBAMAZEPINE
     Route: 048
  6. DACARBAZINE MEDAC [Suspect]
     Active Substance: DACARBAZINE
     Indication: HODGKIN^S DISEASE
     Route: 065
     Dates: start: 20170428

REACTIONS (1)
  - Drug reaction with eosinophilia and systemic symptoms [Recovering/Resolving]

NARRATIVE: CASE EVENT DATE: 20171110
